FAERS Safety Report 4538210-5 (Version None)
Quarter: 2004Q4

REPORT INFORMATION
  Report Type: 
  Country: None (occurrence: None)
  Receive Date: 20041221
  Receipt Date: 20041215
  Transmission Date: 20050328
  Serious: Yes (Death, Hospitalization)
  Sender: FDA-Public Use
  Company Number: 2004106548

PATIENT
  Age: 74 Year
  Sex: Male

DRUGS (8)
  1. IRINOTECAN HCL [Suspect]
     Indication: COLORECTAL CANCER METASTATIC
     Dosage: 742 MG (CYCLIC) INTRAVENOUS
     Route: 042
     Dates: start: 20041117, end: 20041117
  2. CETUXIMAB (CETUXIMAB) [Suspect]
     Indication: COLORECTAL CANCER METASTATIC
     Dosage: 848 MG (CYCLIC), INTRAVENOUS
     Route: 042
     Dates: start: 20041117, end: 20041117
  3. ASPIRIN [Concomitant]
  4. IBUPROFEN [Concomitant]
  5. METFORMIN HCL [Concomitant]
  6. OLMESARTAN MEDOXOMIL (OLMESARTAN MEDOXOMIL) [Concomitant]
  7. TEMAZEPAM [Concomitant]
  8. SULFAFURAZOLE (SULFAFURAZOLE) [Concomitant]

REACTIONS (17)
  - ANOREXIA [None]
  - BLOOD ALBUMIN DECREASED [None]
  - BLOOD POTASSIUM DECREASED [None]
  - DIARRHOEA [None]
  - FAECAL INCONTINENCE [None]
  - FEBRILE NEUTROPENIA [None]
  - GASTROINTESTINAL TOXICITY [None]
  - HAEMATOCRIT DECREASED [None]
  - MONOCYTE COUNT INCREASED [None]
  - NAUSEA [None]
  - PLATELET COUNT DECREASED [None]
  - PNEUMONIA ASPIRATION [None]
  - PULSE ABSENT [None]
  - RED BLOOD CELL COUNT DECREASED [None]
  - RESPIRATORY ARREST [None]
  - VOMITING [None]
  - WEIGHT DECREASED [None]
